FAERS Safety Report 8058755-3 (Version None)
Quarter: 2012Q1

REPORT INFORMATION
  Report Type: 
  Country: None (occurrence: None)
  Receive Date: 20120120
  Receipt Date: 20120111
  Transmission Date: 20120608
  Serious: Yes (Other)
  Sender: FDA-Public Use
  Company Number: US-RB-033265-12

PATIENT
  Age: 44 Year
  Sex: Female

DRUGS (1)
  1. MUCINEX [Suspect]
     Indication: PRODUCT USED FOR UNKNOWN INDICATION
     Route: 048

REACTIONS (6)
  - NAUSEA [None]
  - DYSSTASIA [None]
  - TREMOR [None]
  - DYSGEUSIA [None]
  - DYSARTHRIA [None]
  - HYPOAESTHESIA ORAL [None]
